FAERS Safety Report 23979177 (Version 2)
Quarter: 2024Q2

REPORT INFORMATION
  Report Type: Spontaneous
  Country: PL (occurrence: PL)
  Receive Date: 20240615
  Receipt Date: 20240627
  Transmission Date: 20240716
  Serious: Yes (Other)
  Sender: FDA-Public Use
  Company Number: PL-TEVA-VS-3197816

PATIENT
  Age: 42 Year
  Sex: Female

DRUGS (20)
  1. TOPIRAMATE [Suspect]
     Active Substance: TOPIRAMATE
     Indication: Migraine
     Dosage: UNK
     Route: 065
  2. AMITRIPTYLINE [Suspect]
     Active Substance: AMITRIPTYLINE
     Indication: Migraine
     Dosage: 50 MILLIGRAM, ONCE A DAY
     Route: 065
  3. VALPROATE SODIUM [Suspect]
     Active Substance: VALPROATE SODIUM
     Indication: Migraine
     Dosage: 500 MILLIGRAM, TWO TIMES A DAY
     Route: 065
  4. ZOLMITRIPTAN [Suspect]
     Active Substance: ZOLMITRIPTAN
     Indication: Headache
     Dosage: UNK
     Route: 065
  5. ZOLMITRIPTAN [Concomitant]
     Active Substance: ZOLMITRIPTAN
     Indication: Headache
     Dosage: 2.5 MILLIGRAM
     Route: 065
  6. Solpadeine [Concomitant]
     Indication: Headache
     Dosage: 2 DOSAGE FORM
     Route: 065
  7. BOTULINUM TOXIN NOS [Concomitant]
     Active Substance: BOTULINUM TOXIN NOS
     Indication: Headache
     Dosage: UNK
     Route: 065
  8. SUMATRIPTAN [Concomitant]
     Active Substance: SUMATRIPTAN
     Indication: Headache
     Dosage: 50 MILLIGRAM
     Route: 065
  9. DIVASCAN [Concomitant]
     Indication: Headache
     Dosage: 2 DOSAGE FORM, 3 TIMES A DAY
     Route: 065
  10. DIVASCAN [Concomitant]
     Dosage: 1 DOSAGE FORM, 3 TIMES A DAY
     Route: 065
  11. SUMAMIGREN [Concomitant]
     Indication: Headache
     Dosage: 50 MILLIGRAM
     Route: 065
  12. Amitriptylinum [Concomitant]
     Indication: Headache
     Dosage: 10 MILLIGRAM
     Route: 065
  13. MAXALT [Concomitant]
     Active Substance: RIZATRIPTAN BENZOATE
     Indication: Headache
     Dosage: UNK
     Route: 065
  14. Ketonal [Concomitant]
     Indication: Headache
     Dosage: 100 MILLIGRAM
     Route: 065
  15. PROPRANOLOL [Concomitant]
     Active Substance: PROPRANOLOL HYDROCHLORIDE
     Indication: Heart rate
     Dosage: 10 MILLIGRAM, TWO TIMES A DAY
     Route: 065
  16. PROPRANOLOL [Concomitant]
     Active Substance: PROPRANOLOL HYDROCHLORIDE
     Indication: Blood pressure measurement
  17. RELPAX [Concomitant]
     Active Substance: ELETRIPTAN HYDROBROMIDE
     Indication: Headache
     Dosage: UNK
     Route: 065
  18. NAPROXEN [Concomitant]
     Active Substance: NAPROXEN
     Indication: Headache
     Dosage: 250 MILLIGRAM
     Route: 065
  19. FLUNARIZINE [Concomitant]
     Active Substance: FLUNARIZINE
     Indication: Headache
     Dosage: UNK
     Route: 065
  20. OPIPRAMOL HYDROCHLORIDE [Concomitant]
     Active Substance: OPIPRAMOL HYDROCHLORIDE
     Indication: Headache
     Dosage: 25 MILLIGRAM, 3 TIMES A DAY ( LATER THE DOSE WAS INCREASED TO 3 X 1 TAB)
     Route: 065

REACTIONS (10)
  - Drug dependence [Unknown]
  - Dry mouth [Unknown]
  - Nausea [Unknown]
  - Photophobia [Unknown]
  - Constipation [Unknown]
  - Alopecia [Unknown]
  - Hypersensitivity [Unknown]
  - Drug intolerance [Unknown]
  - Drug ineffective [Unknown]
  - Off label use [Unknown]

NARRATIVE: CASE EVENT DATE: 20120101
